FAERS Safety Report 4591144-2 (Version None)
Quarter: 2005Q1

REPORT INFORMATION
  Report Type: 
  Country: None (occurrence: None)
  Receive Date: 20050222
  Receipt Date: 20050222
  Transmission Date: 20050727
  Serious: Yes (Other)
  Sender: FDA-Public Use
  Company Number: None

PATIENT
  Sex: Male
  Weight: 115.9 kg

DRUGS (3)
  1. IRINOTECAN HCL [Suspect]
     Dosage: 180 MG/M2 IV OVER 90 MIN.
     Route: 042
     Dates: start: 20041028
  2. FLUOROURACIL [Suspect]
     Dosage: 400 MG /M2 IV BOLUS INJECT. POST LV ADMIN, THEN 2400 MG/M2 CONTINUOUS IV INFUSION OVER 46-48 HOURS,8
     Route: 040
  3. LEUCOVORIN CALCIUM [Suspect]
     Dosage: 400 MG/M2 OVER 2 HOURS

REACTIONS (1)
  - BLOOD TRIGLYCERIDES INCREASED [None]
